FAERS Safety Report 23477565 (Version 1)
Quarter: 2024Q1

REPORT INFORMATION
  Report Type: Spontaneous
  Country: DE (occurrence: DE)
  Receive Date: 20240204
  Receipt Date: 20240204
  Transmission Date: 20240410
  Serious: No
  Sender: FDA-Public Use
  Company Number: DE-IPSEN Group, Research and Development-2023-19361

PATIENT
  Sex: Female
  Weight: 57 kg

DRUGS (6)
  1. CABOMETYX [Suspect]
     Active Substance: CABOZANTINIB S-MALATE
     Indication: Renal cancer
     Dosage: 20 MG DAILY
     Route: 048
     Dates: start: 202306
  2. ASPIRIN [Concomitant]
     Active Substance: ASPIRIN
  3. DAPAGLIFLOZIN [Concomitant]
     Active Substance: DAPAGLIFLOZIN
  4. SERTRADAVIA [Concomitant]
  5. METOPROLOL [Concomitant]
     Active Substance: METOPROLOL
  6. VITAMIN B [Concomitant]
     Active Substance: VITAMIN B

REACTIONS (2)
  - Malaise [Unknown]
  - Dyspnoea [Unknown]
